FAERS Safety Report 17507300 (Version 1)
Quarter: 2020Q1

REPORT INFORMATION
  Report Type: Spontaneous
  Country: FR (occurrence: FR)
  Receive Date: 20200306
  Receipt Date: 20200306
  Transmission Date: 20200409
  Serious: Yes (Other)
  Sender: FDA-Public Use
  Company Number: FR-TEVA-2020-FR-1195378

PATIENT
  Age: 28 Year
  Sex: Female
  Weight: 65 kg

DRUGS (7)
  1. TENOFOVIR ALAFENAMIDE (FUMARATE DE) [Concomitant]
  2. ESOMEPRAZOLE. [Concomitant]
     Active Substance: ESOMEPRAZOLE MAGNESIUM
  3. TEMODAL [Suspect]
     Active Substance: TEMOZOLOMIDE
     Indication: ASTROCYTOMA MALIGNANT
     Dosage: 120 MG
     Route: 048
     Dates: start: 20190925, end: 20191028
  4. LAMICTAL [Concomitant]
     Active Substance: LAMOTRIGINE
  5. BACTRIM [Suspect]
     Active Substance: SULFAMETHOXAZOLE\TRIMETHOPRIM
     Indication: OPPORTUNISTIC INFECTION PROPHYLAXIS
     Dosage: 3 DF
     Route: 048
     Dates: start: 20190925
  6. ONDANSETRON [Suspect]
     Active Substance: ONDANSETRON
     Indication: PROPHYLAXIS OF NAUSEA AND VOMITING
     Dosage: 4 MG
     Route: 048
     Dates: start: 20190925
  7. PARACETAMOL [Concomitant]
     Active Substance: ACETAMINOPHEN

REACTIONS (4)
  - Eosinophilia [Recovered/Resolved]
  - Thrombocytopenia [Recovering/Resolving]
  - Pruritus [Not Recovered/Not Resolved]
  - Leukopenia [Recovering/Resolving]

NARRATIVE: CASE EVENT DATE: 201910
